FAERS Safety Report 4401064-1 (Version None)
Quarter: 2004Q3

REPORT INFORMATION
  Report Type: 
  Country: None (occurrence: None)
  Receive Date: 20040907
  Receipt Date: 20031014
  Transmission Date: 20050211
  Serious: Yes (Hospitalization)
  Sender: FDA-Public Use
  Company Number: US-BRISTOL-MYERS SQUIBB COMPANY-12410197

PATIENT
  Age: 78 Year
  Sex: Male
  Weight: 104 kg

DRUGS (5)
  1. COUMADIN [Suspect]
     Indication: HEART VALVE REPLACEMENT
     Dosage: AT PRESENT USES 1/2 TABLET FOR DOSE OF 2.5 MG ONCE DAILY; DOSE TAKEN FOR 3 WKS.
     Route: 048
  2. TOPROL-XL [Concomitant]
     Dosage: TABLET
  3. TRICOR [Concomitant]
     Dosage: TABLET
  4. LIPITOR [Concomitant]
  5. XANAX [Concomitant]

REACTIONS (1)
  - RECTAL HAEMORRHAGE [None]
